FAERS Safety Report 15274066 (Version 1)
Quarter: 2018Q3

REPORT INFORMATION
  Report Type: Spontaneous
  Country: AU (occurrence: AU)
  Receive Date: 20180814
  Receipt Date: 20180814
  Transmission Date: 20181010
  Serious: Yes (Other)
  Sender: FDA-Public Use
  Company Number: AU-AMGEN-AUSSP2018109604

PATIENT
  Age: 88 Year
  Sex: Female

DRUGS (1)
  1. PROLIA [Suspect]
     Active Substance: DENOSUMAB
     Indication: OSTEOPOROSIS
     Dosage: UNK
     Route: 065
     Dates: start: 201710

REACTIONS (5)
  - Dry mouth [Unknown]
  - Hypocalcaemia [Not Recovered/Not Resolved]
  - Chronic kidney disease [Unknown]
  - Fatigue [Unknown]
  - Fracture [Unknown]
